FAERS Safety Report 11926800 (Version 1)
Quarter: 2016Q1

REPORT INFORMATION
  Report Type: Spontaneous
  Country: US (occurrence: US)
  Receive Date: 20160119
  Receipt Date: 20160119
  Transmission Date: 20160526
  Serious: Yes (Other)
  Sender: FDA-Public Use
  Company Number: US-PFIZER INC-2016017738

PATIENT
  Age: 57 Year
  Sex: Male
  Weight: 89 kg

DRUGS (2)
  1. RAPAMUNE [Suspect]
     Active Substance: SIROLIMUS
     Dosage: 2 MG, 1X/DAY (TWO TABLET IN THE MORNING)
  2. RAPAMUNE [Suspect]
     Active Substance: SIROLIMUS
     Indication: LIVER TRANSPLANT
     Dosage: 2 MG, 2X/DAY,2 IN THE MORNING AND 2 AT NIGHT
     Dates: start: 2011

REACTIONS (4)
  - Product use issue [Unknown]
  - Abasia [Not Recovered/Not Resolved]
  - Gout [Not Recovered/Not Resolved]
  - Memory impairment [Unknown]

NARRATIVE: CASE EVENT DATE: 2011
